FAERS Safety Report 19308623 (Version 1)
Quarter: 2021Q2

REPORT INFORMATION
  Report Type: Spontaneous
  Country: JP (occurrence: JP)
  Receive Date: 20210526
  Receipt Date: 20210526
  Transmission Date: 20210717
  Serious: Yes (Hospitalization)
  Sender: FDA-Public Use
  Company Number: JP-TEVA-2021-JP-1914802

PATIENT
  Age: 62 Year
  Sex: Male

DRUGS (9)
  1. POVIDONE?IODINE. [Suspect]
     Active Substance: POVIDONE-IODINE
     Indication: INFECTION PROPHYLAXIS
     Route: 065
  2. ALFACALCIDOL [Concomitant]
     Active Substance: ALFACALCIDOL
     Indication: PRODUCT USED FOR UNKNOWN INDICATION
     Route: 065
  3. GLUCOSE [Concomitant]
     Active Substance: DEXTROSE
     Indication: PERITONEAL DIALYSIS
     Route: 065
  4. NIFEDIPINE. [Suspect]
     Active Substance: NIFEDIPINE
     Indication: PRODUCT USED FOR UNKNOWN INDICATION
     Route: 065
  5. LANTHANUM CARBONATE. [Concomitant]
     Active Substance: LANTHANUM CARBONATE
     Indication: PRODUCT USED FOR UNKNOWN INDICATION
     Route: 065
  6. CALCIUM CARBONATE. [Concomitant]
     Active Substance: CALCIUM CARBONATE
     Indication: PRODUCT USED FOR UNKNOWN INDICATION
     Route: 065
  7. FEXOFENADINE [Concomitant]
     Active Substance: FEXOFENADINE HYDROCHLORIDE
     Indication: PRODUCT USED FOR UNKNOWN INDICATION
     Route: 065
  8. AZILSARTAN [Concomitant]
     Active Substance: AZILSARTAN KAMEDOXOMIL
     Indication: PRODUCT USED FOR UNKNOWN INDICATION
     Route: 065
  9. ICODEXTRIN [Suspect]
     Active Substance: ICODEXTRIN
     Indication: PERITONEAL DIALYSIS
     Route: 065

REACTIONS (3)
  - Pruritus [Recovered/Resolved]
  - Pemphigoid [Recovered/Resolved]
  - Erythema [Recovered/Resolved]
